FAERS Safety Report 15347490 (Version 1)
Quarter: 2018Q3

REPORT INFORMATION
  Report Type: Spontaneous
  Country: FI (occurrence: FI)
  Receive Date: 20180904
  Receipt Date: 20180904
  Transmission Date: 20181010
  Serious: Yes (Life-Threatening, Other)
  Sender: FDA-Public Use
  Company Number: FI-BRISTOL-MYERS SQUIBB COMPANY-BMS-2018-081635

PATIENT
  Age: 73 Year
  Sex: Male

DRUGS (5)
  1. PERATSIN [Concomitant]
     Active Substance: PERPHENAZINE
     Indication: DELUSION
     Dosage: 24 MG, DAILY
     Route: 048
  2. PRIMASPAN [Concomitant]
     Active Substance: ASPIRIN
     Indication: ARTERIOSCLEROSIS
     Dosage: 100 MG, DAILY
     Route: 048
  3. OLANZAPINE ACCORD [Concomitant]
     Active Substance: OLANZAPINE
     Indication: DELUSION
     Dosage: 20 MG, DAILY
     Route: 048
  4. ELIQUIS [Suspect]
     Active Substance: APIXABAN
     Indication: CEREBROVASCULAR ACCIDENT PROPHYLAXIS
     Dosage: 10 MG, DAILY
     Route: 048
     Dates: start: 20180808, end: 20180814
  5. ATORVASTATIN [Concomitant]
     Active Substance: ATORVASTATIN
     Indication: ARTERIOSCLEROSIS
     Dosage: 20 MG, DAILY
     Route: 048

REACTIONS (3)
  - Anaemia [Recovering/Resolving]
  - Oesophageal haemorrhage [Recovering/Resolving]
  - Cardiovascular insufficiency [Recovering/Resolving]

NARRATIVE: CASE EVENT DATE: 20180814
